FAERS Safety Report 11132927 (Version 1)
Quarter: 2015Q2

REPORT INFORMATION
  Report Type: Spontaneous
  Country: US (occurrence: None)
  Receive Date: 20150521
  Receipt Date: 20150521
  Transmission Date: 20150821
  Serious: Yes (Other)
  Sender: FDA-Public Use
  Company Number: None

PATIENT
  Age: 42 Year
  Sex: Female
  Weight: 64.41 kg

DRUGS (5)
  1. CONTRAVE [Suspect]
     Active Substance: BUPROPION HYDROCHLORIDE\NALTREXONE HYDROCHLORIDE
     Indication: WEIGHT DECREASED
     Dosage: ONE PILL ONCE DAILY TAKEN BY MOUTH
     Route: 048
     Dates: start: 20150519, end: 20150519
  2. FLONASE [Concomitant]
     Active Substance: FLUTICASONE PROPIONATE
  3. TYLENOL [Concomitant]
     Active Substance: ACETAMINOPHEN
  4. PEPCID [Concomitant]
     Active Substance: FAMOTIDINE
  5. CELEXA [Concomitant]
     Active Substance: CITALOPRAM HYDROBROMIDE

REACTIONS (4)
  - Heart rate decreased [None]
  - Presyncope [None]
  - Blood pressure increased [None]
  - Nausea [None]

NARRATIVE: CASE EVENT DATE: 20150519
